FAERS Safety Report 25433169 (Version 2)
Quarter: 2025Q2

REPORT INFORMATION
  Report Type: Spontaneous
  Country: CN (occurrence: CN)
  Receive Date: 20250613
  Receipt Date: 20250617
  Transmission Date: 20250717
  Serious: Yes (Other)
  Sender: PFIZER
  Company Number: CN-PFIZER INC-PV202500068635

PATIENT
  Age: 5 Year
  Sex: Female
  Weight: 15 kg

DRUGS (4)
  1. AZITHROMYCIN [Suspect]
     Active Substance: AZITHROMYCIN
     Indication: Upper respiratory tract infection
     Dosage: 0.2 G, 1X/DAY
     Route: 048
     Dates: start: 20250603, end: 20250603
  2. AZITHROMYCIN [Suspect]
     Active Substance: AZITHROMYCIN
     Dosage: 0.1 G, 1X/DAY
     Route: 048
     Dates: start: 20250604, end: 20250606
  3. ROXITHROMYCIN [Concomitant]
     Active Substance: ROXITHROMYCIN
     Indication: Upper respiratory tract infection
     Dosage: 0.075 G, 2X/DAY
     Route: 048
     Dates: start: 20250603, end: 20250606
  4. FEI LI KE [Concomitant]
     Indication: Cough
     Dosage: 10 ML, 3X/DAY
     Route: 048
     Dates: start: 20250603, end: 20250606

REACTIONS (5)
  - Rash macular [Recovering/Resolving]
  - Swelling face [Recovering/Resolving]
  - Rash maculo-papular [Recovering/Resolving]
  - Pruritus [Recovering/Resolving]
  - Face oedema [Recovering/Resolving]

NARRATIVE: CASE EVENT DATE: 20250606
